FAERS Safety Report 10045135 (Version 2)
Quarter: 2014Q2

REPORT INFORMATION
  Report Type: Spontaneous
  Country: US (occurrence: US)
  Receive Date: 20140328
  Receipt Date: 20140508
  Transmission Date: 20141212
  Serious: Yes (Other)
  Sender: FDA-Public Use
  Company Number: US-PFIZER INC-2014087403

PATIENT
  Age: 76 Year
  Sex: Female
  Weight: 50 kg

DRUGS (4)
  1. CYTOMEL [Suspect]
     Indication: HYPOTHYROIDISM
     Dosage: 5 UG, 3X/DAY
  2. SYNTHROID [Suspect]
     Indication: HYPOTHYROIDISM
     Dosage: 100 UG, 1X/DAY
     Dates: start: 2002
  3. SYNTHROID [Suspect]
     Dosage: 200 UG, 1X/DAY
  4. NATURE THROID [Suspect]
     Indication: HYPOTHYROIDISM
     Dosage: ^6 GRAINS^ IN THE MORNING AND ^1 GRAIN^ IN THE AFTERNOON

REACTIONS (5)
  - Mitochondrial cytopathy [Unknown]
  - Condition aggravated [Unknown]
  - Drug ineffective [Unknown]
  - Asthenia [Unknown]
  - Fatigue [Unknown]
